FAERS Safety Report 17816559 (Version 2)
Quarter: 2022Q3

REPORT INFORMATION
  Report Type: Spontaneous
  Country: US (occurrence: US)
  Receive Date: 20200522
  Receipt Date: 20220927
  Transmission Date: 20221027
  Serious: No
  Sender: FDA-Public Use
  Company Number: US-PFIZER INC-2020203537

PATIENT
  Age: 68 Year
  Sex: Female

DRUGS (4)
  1. IBRANCE [Suspect]
     Active Substance: PALBOCICLIB
     Dosage: 125 MG UNK
     Dates: start: 20190510
  2. IBRANCE [Suspect]
     Active Substance: PALBOCICLIB
     Dosage: UNK
     Dates: start: 20190518
  3. IBRANCE [Suspect]
     Active Substance: PALBOCICLIB
     Dosage: 125 MG UNK
     Dates: start: 20190523
  4. IBRANCE [Suspect]
     Active Substance: PALBOCICLIB
     Dosage: 125 MG UNK
     Dates: start: 20190626

REACTIONS (6)
  - Product dose omission issue [Unknown]
  - Alopecia [Unknown]
  - Skin fissures [Unknown]
  - Nail growth abnormal [Not Recovered/Not Resolved]
  - Dry skin [Unknown]
  - Hair growth abnormal [Not Recovered/Not Resolved]
